FAERS Safety Report 14590224 (Version 1)
Quarter: 2018Q1

REPORT INFORMATION
  Report Type: Spontaneous
  Country: FR (occurrence: FR)
  Receive Date: 20180302
  Receipt Date: 20180302
  Transmission Date: 20180509
  Serious: Yes (Hospitalization)
  Sender: FDA-Public Use
  Company Number: FR-AUROBINDO-AUR-APL-2018-010253

PATIENT
  Age: 85 Year
  Sex: Female
  Weight: 58 kg

DRUGS (3)
  1. CEFIXIME. [Suspect]
     Active Substance: CEFIXIME
     Indication: INFECTION
     Dosage: 200 MILLIGRAM, DAILY
     Route: 065
     Dates: start: 20180129, end: 20180201
  2. AMOXICILLIN. [Suspect]
     Active Substance: AMOXICILLIN
     Indication: INFECTION
     Dosage: 3 GRAM
     Route: 048
     Dates: start: 20180125, end: 20180129
  3. VITAMINE B12 AGUETTANT [Suspect]
     Active Substance: CYANOCOBALAMIN
     Indication: PROPHYLAXIS
     Dosage: 1 DOSAGE FORM
     Route: 048
     Dates: start: 20180127, end: 20180129

REACTIONS (2)
  - Urticaria [Not Recovered/Not Resolved]
  - Eosinophilia [Not Recovered/Not Resolved]

NARRATIVE: CASE EVENT DATE: 20180129
